FAERS Safety Report 7174831-1 (Version None)
Quarter: 2010Q4

REPORT INFORMATION
  Report Type: 
  Country: None (occurrence: None)
  Receive Date: 20101219
  Receipt Date: 20100623
  Transmission Date: 20110411
  Serious: No
  Sender: FDA-Public Use
  Company Number: US-AMGEN-KDL401306

PATIENT

DRUGS (1)
  1. ENBREL [Suspect]
     Indication: RHEUMATOID ARTHRITIS
     Dosage: 50 MG, QWK
     Route: 058
     Dates: start: 20100310, end: 20100601

REACTIONS (8)
  - BLOOD PRESSURE DIASTOLIC ABNORMAL [None]
  - BLOOD PRESSURE SYSTOLIC ABNORMAL [None]
  - HYPERTENSION [None]
  - ORAL HERPES [None]
  - OTORRHOEA [None]
  - PAIN IN JAW [None]
  - RHEUMATOID ARTHRITIS [None]
  - THROAT IRRITATION [None]
